FAERS Safety Report 7014246-X (Version None)
Quarter: 2010Q3

REPORT INFORMATION
  Report Type: 
  Country: None (occurrence: None)
  Receive Date: 20100927
  Receipt Date: 20100916
  Transmission Date: 20110219
  Serious: No
  Sender: FDA-Public Use
  Company Number: US-BAYER-201024027NA

PATIENT
  Age: 30 Year
  Sex: Female

DRUGS (2)
  1. MIRENA [Suspect]
     Indication: CONTRACEPTION
     Dosage: FREQUENCY: CONTINUOUS
     Route: 015
     Dates: start: 20090927
  2. BIRTH CONTROL PILLS [Concomitant]

REACTIONS (3)
  - MENSTRUATION DELAYED [None]
  - PREGNANCY WITH CONTRACEPTIVE DEVICE [None]
  - VAGINAL HAEMORRHAGE [None]
